FAERS Safety Report 16260085 (Version 1)
Quarter: 2019Q2

REPORT INFORMATION
  Report Type: Spontaneous
  Country: HR (occurrence: HR)
  Receive Date: 20190501
  Receipt Date: 20190501
  Transmission Date: 20190711
  Serious: Yes (Life-Threatening, Hospitalization)
  Sender: FDA-Public Use
  Company Number: HR-TEVA-2019-HR-1043452

PATIENT
  Age: 84 Year
  Sex: Male
  Weight: 72 kg

DRUGS (5)
  1. OKSAZEPAM BELUPO [Concomitant]
     Indication: MIDDLE INSOMNIA
     Dosage: 10 MG
     Dates: start: 20181106
  2. OLANDIX [Suspect]
     Active Substance: OLANZAPINE
     Indication: ORGANIC BRAIN SYNDROME
     Dosage: 10 MG
     Route: 048
     Dates: start: 20190320, end: 20190321
  3. ANDOL [Concomitant]
     Active Substance: ASPIRIN
     Route: 048
     Dates: start: 2016
  4. PRILEN [Concomitant]
     Active Substance: RAMIPRIL
     Indication: ESSENTIAL HYPERTENSION
     Dosage: 2.5 MILLIGRAM DAILY; 2.5 MG
     Route: 048
     Dates: start: 20181210
  5. OLANZAPIN PHARMAS [Concomitant]
     Indication: ORGANIC BRAIN SYNDROME
     Dosage: 5 MG
     Route: 048
     Dates: start: 20181108, end: 20190320

REACTIONS (8)
  - Hypertonia [Recovering/Resolving]
  - Dizziness [Recovering/Resolving]
  - Disorientation [Recovering/Resolving]
  - Vertigo [Recovering/Resolving]
  - Neuroleptic malignant syndrome [Recovering/Resolving]
  - Salivary hypersecretion [Recovering/Resolving]
  - Speech disorder [Recovering/Resolving]
  - Tremor [Recovering/Resolving]

NARRATIVE: CASE EVENT DATE: 20190321
